FAERS Safety Report 8828057 (Version 1)
Quarter: 2012Q4

REPORT INFORMATION
  Report Type: 
  Country: IN (occurrence: IN)
  Receive Date: 20121008
  Receipt Date: 20121008
  Transmission Date: 20130627
  Serious: Yes (Other)
  Sender: FDA-Public Use
  Company Number: PHHY2012IN086327

PATIENT
  Age: 45 Year
  Sex: Male

DRUGS (1)
  1. COARTEM [Suspect]
     Indication: MALARIA

REACTIONS (2)
  - Urinary retention [Recovered/Resolved]
  - Physical examination abnormal [Recovered/Resolved]
